FAERS Safety Report 18329945 (Version 1)
Quarter: 2020Q3

REPORT INFORMATION
  Report Type: Spontaneous
  Country: US (occurrence: US)
  Receive Date: 20200930
  Receipt Date: 20200930
  Transmission Date: 20201103
  Serious: Yes (Life-Threatening, Hospitalization)
  Sender: FDA-Public Use
  Company Number: None

PATIENT
  Age: 83 Year
  Sex: Female
  Weight: 80.7 kg

DRUGS (5)
  1. ENOXAPARIN [Suspect]
     Active Substance: ENOXAPARIN
     Indication: THROMBOSIS PROPHYLAXIS
     Route: 058
     Dates: start: 20200821, end: 20200827
  2. PEPCID 20MG DAILY [Concomitant]
  3. ASPIRIN 81MG DAILY [Concomitant]
     Active Substance: ASPIRIN
  4. SODIUM BICARB 325MG DAILY [Concomitant]
  5. PLAVIX 75MG DAILY [Concomitant]

REACTIONS (2)
  - Gastrointestinal haemorrhage [None]
  - Unresponsive to stimuli [None]

NARRATIVE: CASE EVENT DATE: 20200828
